FAERS Safety Report 7329659-6 (Version None)
Quarter: 2011Q1

REPORT INFORMATION
  Report Type: 
  Country: None (occurrence: None)
  Receive Date: 20110303
  Receipt Date: 20110223
  Transmission Date: 20110831
  Serious: Yes (Death)
  Sender: FDA-Public Use
  Company Number: US-PFIZER INC-2008003093

PATIENT
  Age: 20 Year
  Sex: Male

DRUGS (6)
  1. RAMELTEON [Suspect]
     Dosage: UNK
     Route: 048
  2. ALPRAZOLAM [Suspect]
     Dosage: UNK
     Route: 048
  3. PREGABALIN [Suspect]
     Dosage: UNK
     Route: 048
  4. EFFEXOR [Suspect]
     Dosage: UNK
     Route: 048
  5. ESZOPICLONE [Suspect]
     Dosage: UNK
     Route: 048
  6. VALPROIC ACID [Suspect]
     Dosage: OVERDOSE AMOUNT UNKNOWN
     Route: 048
     Dates: start: 20060101, end: 20060101

REACTIONS (5)
  - RESPIRATORY ARREST [None]
  - CARDIAC ARREST [None]
  - SELF INJURIOUS BEHAVIOUR [None]
  - COMPLETED SUICIDE [None]
  - INTENTIONAL DRUG MISUSE [None]
